FAERS Safety Report 5955866-0 (Version None)
Quarter: 2008Q4

REPORT INFORMATION
  Report Type: 
  Country: None (occurrence: None)
  Receive Date: 20081112
  Receipt Date: 20081029
  Transmission Date: 20090506
  Serious: Yes (Hospitalization)
  Sender: FDA-Public Use
  Company Number: 2008SP022090

PATIENT
  Age: 46 Year
  Sex: Male

DRUGS (4)
  1. PEG-INTRON [Suspect]
     Indication: HEPATITIS C
     Dosage: SC : SC
     Route: 058
     Dates: start: 20080617
  2. REBETOL [Suspect]
     Dosage: PO : PO
     Route: 048
     Dates: start: 20080617
  3. PLAVIX [Suspect]
     Indication: CARDIAC DISORDER
  4. PLAVIX [Concomitant]

REACTIONS (5)
  - EPISTAXIS [None]
  - HEADACHE [None]
  - ILL-DEFINED DISORDER [None]
  - PHOTOPHOBIA [None]
  - PNEUMONIA [None]
